FAERS Safety Report 15891385 (Version 1)
Quarter: 2019Q1

REPORT INFORMATION
  Report Type: Spontaneous
  Country: US (occurrence: US)
  Receive Date: 20190130
  Receipt Date: 20190130
  Transmission Date: 20190417
  Serious: No
  Sender: FDA-Public Use
  Company Number: US-ALLERGAN-1853115US

PATIENT
  Age: 15 Year
  Sex: Female
  Weight: 56.69 kg

DRUGS (5)
  1. VIIBRYD [Suspect]
     Active Substance: VILAZODONE HYDROCHLORIDE
     Indication: DEPRESSION
  2. COPPER [Concomitant]
     Active Substance: COPPER
     Dosage: UNK
     Route: 048
  3. VIIBRYD [Suspect]
     Active Substance: VILAZODONE HYDROCHLORIDE
     Indication: ANXIETY
     Dosage: 10 MG, QD
     Route: 048
     Dates: start: 20181103
  4. ZINC. [Concomitant]
     Active Substance: ZINC
     Dosage: UNK
     Route: 048
  5. B6 SUPPLEMENT [Concomitant]
     Dosage: UNK
     Route: 048

REACTIONS (3)
  - Off label use [Unknown]
  - Nausea [Not Recovered/Not Resolved]
  - Abdominal pain upper [Not Recovered/Not Resolved]

NARRATIVE: CASE EVENT DATE: 20181103
